FAERS Safety Report 17994358 (Version 3)
Quarter: 2020Q3

REPORT INFORMATION
  Report Type: Report from Study
  Country: None (occurrence: US)
  Receive Date: 20200708
  Receipt Date: 20200717
  Transmission Date: 20201103
  Serious: Yes (Hospitalization, Other)
  Sender: FDA-Public Use
  Company Number: US-INSMED, INC.-US-INS-20-01138

PATIENT
  Sex: Male

DRUGS (3)
  1. ARIKAYCE [Suspect]
     Active Substance: AMIKACIN
     Route: 055
     Dates: start: 2020, end: 20200628
  2. ARIKAYCE [Suspect]
     Active Substance: AMIKACIN
     Indication: PRODUCT USED FOR UNKNOWN INDICATION
     Route: 055
     Dates: start: 20200425, end: 2020
  3. LAMIRA NEBULIZER SYSTEM [Suspect]
     Active Substance: DEVICE

REACTIONS (18)
  - Taste disorder [Unknown]
  - Dyspnoea [Recovering/Resolving]
  - Intentional dose omission [Unknown]
  - Lung neoplasm malignant [Unknown]
  - Asthenia [Recovering/Resolving]
  - Nausea [Unknown]
  - Device issue [Unknown]
  - Hospitalisation [Unknown]
  - Abnormal faeces [Unknown]
  - Urine odour abnormal [Unknown]
  - Skin odour abnormal [Unknown]
  - Cough [Unknown]
  - Feeling abnormal [Unknown]
  - Parosmia [Unknown]
  - Drug dose omission by device [Unknown]
  - Night sweats [Unknown]
  - Illness [Recovering/Resolving]
  - Chest discomfort [Unknown]

NARRATIVE: CASE EVENT DATE: 2020
